FAERS Safety Report 4928740-6 (Version None)
Quarter: 2006Q1

REPORT INFORMATION
  Report Type: 
  Country: None (occurrence: None)
  Receive Date: 20060227
  Receipt Date: 20060227
  Transmission Date: 20060701
  Serious: No
  Sender: FDA-Public Use
  Company Number: None

PATIENT
  Sex: Male
  Weight: 96.6162 kg

DRUGS (3)
  1. PAXIL CR [Suspect]
     Indication: DEPRESSION
     Dosage: 75 MG  QAM PO;  50 MG QAM PO
     Route: 048
     Dates: start: 20050916, end: 20050917
  2. CARDURA [Concomitant]
  3. PROTONIX [Concomitant]

REACTIONS (4)
  - DRY MOUTH [None]
  - FALL [None]
  - SEDATION [None]
  - SOMNOLENCE [None]
